FAERS Safety Report 6055588-4 (Version None)
Quarter: 2009Q1

REPORT INFORMATION
  Report Type: 
  Country: None (occurrence: None)
  Receive Date: 20090128
  Receipt Date: 20090120
  Transmission Date: 20090719
  Serious: Yes (Other)
  Sender: FDA-Public Use
  Company Number: CZ-JNJFOC-20090105271

PATIENT
  Sex: Male

DRUGS (8)
  1. REMICADE [Suspect]
     Indication: PSORIATIC ARTHROPATHY
     Route: 042
  2. METHOTREXATE [Concomitant]
  3. ACIDUM FOLICUM [Concomitant]
  4. LESCOL XL [Concomitant]
  5. TENORMIN [Concomitant]
  6. PURINOL [Concomitant]
  7. RIVOTRIL [Concomitant]
  8. DURAGESIC-100 [Concomitant]

REACTIONS (1)
  - SQUAMOUS CELL CARCINOMA [None]
